FAERS Safety Report 9419504 (Version 2)
Quarter: 2015Q2

REPORT INFORMATION
  Report Type: Spontaneous
  Country: US (occurrence: None)
  Receive Date: 20130723
  Receipt Date: 20150528
  Transmission Date: 20150821
  Serious: Yes (Death)
  Sender: FDA-Public Use
  Company Number: 13-04-001

PATIENT

DRUGS (3)
  1. CIDOFOVIR. [Suspect]
     Active Substance: CIDOFOVIR
     Dosage: EQ 75 MG BASE/ML
  2. FOSCARNET [Concomitant]
     Active Substance: FOSCARNET
  3. GANCICLOVIR. [Concomitant]
     Active Substance: GANCICLOVIR

REACTIONS (1)
  - Renal failure [None]
